FAERS Safety Report 7228492-3 (Version None)
Quarter: 2011Q1

REPORT INFORMATION
  Report Type: 
  Country: None (occurrence: None)
  Receive Date: 20110116
  Receipt Date: 20110106
  Transmission Date: 20110831
  Serious: Yes (Other)
  Sender: FDA-Public Use
  Company Number: PHHY2010IE25573

PATIENT
  Age: 32 Year
  Sex: Male

DRUGS (2)
  1. TOBRAMYCIN [Suspect]
     Indication: PSEUDOMONAS INFECTION
  2. TOBRAMYCIN [Suspect]
     Indication: CYSTIC FIBROSIS
     Dosage: 300 MG, BID
     Dates: start: 20070701, end: 20070901

REACTIONS (1)
  - RENAL IMPAIRMENT [None]
